FAERS Safety Report 12110644 (Version 1)
Quarter: 2016Q1

REPORT INFORMATION
  Report Type: Spontaneous
  Country: US (occurrence: US)
  Receive Date: 20160224
  Receipt Date: 20160224
  Transmission Date: 20160526
  Serious: No
  Sender: FDA-Public Use
  Company Number: US-PFIZER INC-2016106198

PATIENT
  Age: 75 Year
  Sex: Female

DRUGS (1)
  1. DIFLUCAN [Suspect]
     Active Substance: FLUCONAZOLE
     Dosage: UNK

REACTIONS (6)
  - Decreased appetite [Unknown]
  - Irritability [Unknown]
  - Insomnia [Unknown]
  - Amnesia [Unknown]
  - Fatigue [Unknown]
  - Depression [Unknown]
